FAERS Safety Report 11996659 (Version 6)
Quarter: 2017Q4

REPORT INFORMATION
  Report Type: Report from Study
  Country: CA (occurrence: CA)
  Receive Date: 20160203
  Receipt Date: 20171031
  Transmission Date: 20180320
  Serious: Yes (Hospitalization)
  Sender: FDA-Public Use
  Company Number: PHHY2015CA111607

PATIENT
  Age: 67 Year
  Sex: Female

DRUGS (7)
  1. EXJADE [Suspect]
     Active Substance: DEFERASIROX
     Indication: MYELODYSPLASTIC SYNDROME
     Dosage: 2000 MG, QD
     Route: 048
     Dates: start: 20150713
  2. MAGNESIUM OXIDE. [Concomitant]
     Active Substance: MAGNESIUM OXIDE
     Indication: PRODUCT USED FOR UNKNOWN INDICATION
     Dosage: 420 MG, UNK
     Route: 065
  3. EXJADE [Suspect]
     Active Substance: DEFERASIROX
     Dosage: 1000 MG, QD
     Route: 048
  4. ALLOPURINOL. [Concomitant]
     Active Substance: ALLOPURINOL
     Indication: PRODUCT USED FOR UNKNOWN INDICATION
     Dosage: 200 MG, UNK
     Route: 065
  5. TECTA [Concomitant]
     Active Substance: PANTOPRAZOLE MAGNESIUM
     Indication: PRODUCT USED FOR UNKNOWN INDICATION
     Dosage: 40 MG, UNK
     Route: 065
  6. EXJADE [Suspect]
     Active Substance: DEFERASIROX
     Dosage: 2000 MG, QD
     Route: 048
  7. EXJADE [Suspect]
     Active Substance: DEFERASIROX
     Dosage: 500 MG, QD
     Route: 048
     Dates: start: 20160627

REACTIONS (13)
  - Wound infection [Unknown]
  - Hip fracture [Unknown]
  - Limb injury [Unknown]
  - Chest discomfort [Unknown]
  - Dry skin [Unknown]
  - Fall [Unknown]
  - Memory impairment [Unknown]
  - Vomiting [Unknown]
  - Nasopharyngitis [Unknown]
  - Platelet count increased [Unknown]
  - Eczema [Unknown]
  - Erythema [Unknown]
  - Nausea [Unknown]

NARRATIVE: CASE EVENT DATE: 20160123
